FAERS Safety Report 5913936-7 (Version None)
Quarter: 2008Q4

REPORT INFORMATION
  Report Type: 
  Country: None (occurrence: None)
  Receive Date: 20081009
  Receipt Date: 20080929
  Transmission Date: 20090506
  Serious: Yes (Other)
  Sender: FDA-Public Use
  Company Number: IT-MERCK-0810USA00346

PATIENT
  Age: 4 Year
  Sex: Male

DRUGS (4)
  1. ELSPAR [Suspect]
     Route: 065
  2. DECADRON [Suspect]
     Route: 065
  3. DOXORUBICIN [Suspect]
     Route: 065
  4. VINCRISTINE SULFATE [Suspect]
     Route: 065

REACTIONS (3)
  - CONVULSION [None]
  - ENCEPHALOPATHY [None]
  - TEMPORAL LOBE EPILEPSY [None]
